FAERS Safety Report 12612849 (Version 3)
Quarter: 2021Q2

REPORT INFORMATION
  Report Type: Spontaneous
  Country: US (occurrence: US)
  Receive Date: 20160802
  Receipt Date: 20210529
  Transmission Date: 20210716
  Serious: Yes (Death, Hospitalization, Other)
  Sender: FDA-Public Use
  Company Number: US-JNJFOC-20160720145

PATIENT
  Age: 43 Year
  Sex: Male
  Weight: 94.1 kg

DRUGS (2)
  1. TYLENOL EXTRA STRENGTH [Suspect]
     Active Substance: ACETAMINOPHEN
     Indication: PRODUCT USED FOR UNKNOWN INDICATION
     Dosage: 31500 MG OVER 10 DAYS?6 TO 8 500 MG TABLETS PER DAY FOR 3 MONTHS
     Route: 065
     Dates: start: 199806
  2. KEFLEX [Suspect]
     Active Substance: CEPHALEXIN
     Indication: PRODUCT USED FOR UNKNOWN INDICATION
     Dosage: 500 MG DAILY FOR 14 DAYS
     Route: 065
     Dates: start: 19980609, end: 19980623

REACTIONS (6)
  - Arthralgia [Unknown]
  - Chest X-ray abnormal [Unknown]
  - Brain oedema [Fatal]
  - Acute hepatic failure [Fatal]
  - Overdose [Fatal]
  - Sepsis [Fatal]

NARRATIVE: CASE EVENT DATE: 19980623
